FAERS Safety Report 21974076 (Version 1)
Quarter: 2023Q1

REPORT INFORMATION
  Report Type: Spontaneous
  Country: US (occurrence: None)
  Receive Date: 20230208
  Receipt Date: 20230208
  Transmission Date: 20230418
  Serious: Yes (Hospitalization)
  Sender: FDA-Public Use
  Company Number: None

PATIENT
  Age: 48 Year
  Sex: 0

DRUGS (7)
  1. AMANTADINE [Suspect]
     Active Substance: AMANTADINE
     Indication: Dyskinesia
     Dosage: FREQUENCY : TWICE A DAY;?
     Route: 048
  2. AMANTADINE [Suspect]
     Active Substance: AMANTADINE
     Indication: Schizophrenia
  3. BENZTROPINE [Concomitant]
     Active Substance: BENZTROPINE
  4. Chlorpromazine 200mg [Concomitant]
  5. INGREZZA [Concomitant]
     Active Substance: VALBENAZINE
  6. LEVOTHYROXINE [Concomitant]
     Active Substance: LEVOTHYROXINE
  7. ROSUVASTATIN [Concomitant]
     Active Substance: ROSUVASTATIN

REACTIONS (1)
  - Hospitalisation [None]

NARRATIVE: CASE EVENT DATE: 20230207
